FAERS Safety Report 13588834 (Version 1)
Quarter: 2017Q2

REPORT INFORMATION
  Report Type: Spontaneous
  Country: US (occurrence: US)
  Receive Date: 20170529
  Receipt Date: 20170529
  Transmission Date: 20170830
  Serious: Yes (Other)
  Sender: FDA-Public Use
  Company Number: US-STRIDES ARCOLAB LIMITED-2016SP019001

PATIENT

DRUGS (4)
  1. ZIDOVUDINE. [Concomitant]
     Active Substance: ZIDOVUDINE
     Indication: PROPHYLAXIS AGAINST HIV INFECTION
     Dosage: UNK
  2. DIDANOSINE. [Concomitant]
     Active Substance: DIDANOSINE
     Indication: PROPHYLAXIS AGAINST HIV INFECTION
     Dosage: UNK
  3. NEVIRAPINE. [Suspect]
     Active Substance: NEVIRAPINE
     Dosage: 200 MG, BID
  4. NEVIRAPINE. [Suspect]
     Active Substance: NEVIRAPINE
     Indication: PROPHYLAXIS AGAINST HIV INFECTION
     Dosage: 200 MG, QD

REACTIONS (2)
  - Skin toxicity [Recovered/Resolved]
  - Off label use [Unknown]
